FAERS Safety Report 8175516-5 (Version None)
Quarter: 2012Q1

REPORT INFORMATION
  Report Type: 
  Country: None (occurrence: None)
  Receive Date: 20120229
  Receipt Date: 20120223
  Transmission Date: 20120608
  Serious: Yes (Other)
  Sender: FDA-Public Use
  Company Number: JP-MERCK-1202USA02723

PATIENT
  Age: 75 Year
  Sex: Female

DRUGS (4)
  1. JANUVIA [Suspect]
     Indication: DIABETES MELLITUS
     Route: 048
     Dates: start: 20110929
  2. METFORMIN HCL [Concomitant]
     Indication: DIABETES MELLITUS
     Dosage: INCREASE FROM 1000 DAY MG
     Route: 048
     Dates: start: 20110929
  3. GLIMICRON [Concomitant]
     Indication: DIABETES MELLITUS
     Dosage: WEIGHT LOSS FROM 40 DAY MG
     Route: 048
     Dates: start: 20110929
  4. MIGLITOL [Concomitant]
     Indication: DIABETES MELLITUS
     Route: 048

REACTIONS (1)
  - AUTOIMMUNE PANCREATITIS [None]
